FAERS Safety Report 6866585-0 (Version None)
Quarter: 2010Q2

REPORT INFORMATION
  Report Type: 
  Country: None (occurrence: None)
  Receive Date: 20100601
  Receipt Date: 20100504
  Transmission Date: 20101027
  Serious: Yes (Other)
  Sender: FDA-Public Use
  Company Number: US201003008150

PATIENT
  Age: 45 Year
  Sex: Female
  Weight: 103.9 kg

DRUGS (4)
  1. BYETTA [Suspect]
     Indication: TYPE 2 DIABETES MELLITUS
     Dosage: 10 UG
     Dates: end: 20100323
  2. EXENATIDE 10MCG PEN, DISPOSABLE DEVICE (EXENATIDE PEN (10MCG)) [Concomitant]
  3. LIPITOR [Concomitant]
  4. TRICOR [Concomitant]

REACTIONS (1)
  - PANCREATITIS [None]
